FAERS Safety Report 11988459 (Version 1)
Quarter: 2016Q1

REPORT INFORMATION
  Report Type: Spontaneous
  Country: GR (occurrence: GR)
  Receive Date: 20160202
  Receipt Date: 20160202
  Transmission Date: 20160526
  Serious: Yes (Life-Threatening)
  Sender: FDA-Public Use
  Company Number: GR-JNJFOC-20160200155

PATIENT
  Age: 27 Year
  Sex: Male
  Weight: 98 kg

DRUGS (1)
  1. SIMPONI [Suspect]
     Active Substance: GOLIMUMAB
     Indication: ANKYLOSING SPONDYLITIS
     Route: 058
     Dates: start: 201212, end: 201412

REACTIONS (2)
  - Orchidectomy [Unknown]
  - Testicular seminoma (pure) [Unknown]

NARRATIVE: CASE EVENT DATE: 20150114
